FAERS Safety Report 11517712 (Version 1)
Quarter: 2015Q3

REPORT INFORMATION
  Report Type: Spontaneous
  Country: FR (occurrence: FR)
  Receive Date: 20150917
  Receipt Date: 20150917
  Transmission Date: 20151125
  Serious: Yes (Death)
  Sender: FDA-Public Use
  Company Number: FR-ASTRAZENECA-2015SE88218

PATIENT
  Age: 807 Hour
  Sex: Male

DRUGS (31)
  1. ALDACTONE [Suspect]
     Active Substance: SPIRONOLACTONE
     Indication: BRONCHOPULMONARY DYSPLASIA
     Route: 065
     Dates: start: 20141217, end: 20150116
  2. LIQUIGEN [Concomitant]
     Active Substance: MEDIUM-CHAIN TRIGLYCERIDES
     Dosage: 0.4 ML PER MEAL
     Dates: start: 20150118
  3. FOLIC ACID. [Concomitant]
     Active Substance: FOLIC ACID
  4. MYDRIATICUM [Suspect]
     Active Substance: TROPICAMIDE
     Indication: DIAGNOSTIC PROCEDURE
     Dosage: ONCE/SINGLE ADMINISTRATION
     Route: 031
     Dates: start: 20150120
  5. FERROSTRANE [Suspect]
     Active Substance: SODIUM FEREDETATE
     Indication: ANAEMIA
     Dosage: 3 MG/KG/DAY
     Route: 048
     Dates: start: 20150114, end: 20150116
  6. FORTIPRE [Concomitant]
     Dosage: TO SUPPLEMENT MILK AT 2 PERCENT
     Dates: start: 20141219
  7. PREGESTIMIL [Concomitant]
     Dosage: 6 X 36 ML
     Dates: start: 20150119
  8. PREGESTIMIL [Concomitant]
     Dosage: 6 X 42 ML
     Dates: start: 20150122
  9. CAFEINE COOPER [Suspect]
     Active Substance: CAFFEINE
     Indication: APNOEA NEONATAL
     Route: 065
     Dates: start: 20141123, end: 20150124
  10. FORTIPRE [Concomitant]
     Dosage: TO SUPPLEMENT MILK AT 3 PERCENT
     Dates: start: 20141221
  11. PREGESTIMIL [Concomitant]
     Dosage: 6 X 45 ML
     Dates: start: 20150123
  12. PULMICORT TURBUHALER [Suspect]
     Active Substance: BUDESONIDE
     Indication: BRONCHOPULMONARY DYSPLASIA
     Route: 055
     Dates: start: 20141217, end: 20141222
  13. IBUPROFENE [Suspect]
     Active Substance: IBUPROFEN
     Indication: PATENT DUCTUS ARTERIOSUS
     Dosage: 5 MG/KG
     Route: 065
     Dates: start: 20141125, end: 20141129
  14. CELESTENE [Suspect]
     Active Substance: BETAMETHASONE
     Indication: BRONCHOPULMONARY DYSPLASIA
     Dosage: 0.063 MG.KG/DAY
     Route: 042
     Dates: start: 20141223
  15. LIQUIGEN [Concomitant]
     Active Substance: MEDIUM-CHAIN TRIGLYCERIDES
     Dates: start: 20141223
  16. PANTOPRAZOLE [Suspect]
     Active Substance: PANTOPRAZOLE SODIUM
     Route: 042
     Dates: start: 20141229, end: 20150106
  17. NEOSYNEPHRINE [Suspect]
     Active Substance: PHENYLEPHRINE HYDROCHLORIDE
     Indication: DIAGNOSTIC PROCEDURE
     Dosage: ONCE/SINGLE ADMINISTRATION
     Route: 031
     Dates: start: 20150106
  18. NEOSYNEPHRINE [Suspect]
     Active Substance: PHENYLEPHRINE HYDROCHLORIDE
     Indication: DIAGNOSTIC PROCEDURE
     Dosage: ONCE/SINGLE ADMINISTRATION
     Route: 031
     Dates: start: 20150120
  19. IBUPROFENE [Suspect]
     Active Substance: IBUPROFEN
     Indication: PATENT DUCTUS ARTERIOSUS
     Dosage: 10 MG/KG
     Route: 065
     Dates: start: 20141124, end: 20141125
  20. FORTIPRE [Concomitant]
     Dosage: TO SUPPLEMENT MILK AT 5 PERCENT
     Dates: start: 20150111
  21. LIQUIGEN [Concomitant]
     Active Substance: MEDIUM-CHAIN TRIGLYCERIDES
     Dosage: 0.3 ML PER MEAL
     Dates: start: 20150116
  22. PREGESTIMIL [Concomitant]
     Dosage: 6 X 20 ML
     Dates: start: 20150118
  23. INEXIUM [Suspect]
     Active Substance: ESOMEPRAZOLE
     Indication: REGURGITATION
     Route: 048
     Dates: start: 20150106, end: 20150117
  24. MYDRIATICUM [Suspect]
     Active Substance: TROPICAMIDE
     Indication: DIAGNOSTIC PROCEDURE
     Dosage: ONCE/SINGLE ADMINISTRATION
     Route: 031
     Dates: start: 20150106
  25. FORTIPRE [Concomitant]
     Dosage: TO SUPPLEMENT MILK AT 4 PERCENT
     Dates: start: 20141223
  26. LIQUIGEN [Concomitant]
     Active Substance: MEDIUM-CHAIN TRIGLYCERIDES
     Dosage: 0.2 ML PER MEAL
     Dates: start: 20141226
  27. PREGESTIMIL [Concomitant]
     Dosage: 6 X 37 ML
     Dates: start: 20150120
  28. RIFAMYCINE CHIBRET [Suspect]
     Active Substance: RIFAMYCIN
     Indication: INFECTION PROPHYLAXIS
     Route: 031
     Dates: start: 20141123
  29. CELESTENE [Suspect]
     Active Substance: BETAMETHASONE
     Indication: BRONCHOPULMONARY DYSPLASIA
     Dosage: 0.25 MG/KG/DAY
     Route: 042
     Dates: start: 20141221, end: 20141223
  30. FERROSTRANE [Suspect]
     Active Substance: SODIUM FEREDETATE
     Indication: ANAEMIA
     Dosage: 2 MG/KG/DAY
     Route: 048
     Dates: start: 20150110, end: 20150114
  31. OPTIFLOW [Concomitant]
     Dates: start: 20150121

REACTIONS (15)
  - Staphylococcus test positive [None]
  - Pneumatosis intestinalis [None]
  - Atelectasis [None]
  - Mydriasis [None]
  - Apnoea neonatal [Fatal]
  - Septic shock [Fatal]
  - Enterococcal bacteraemia [None]
  - Gastrooesophageal reflux disease [None]
  - Rectal haemorrhage [None]
  - Hypotonia [None]
  - Serratia test positive [None]
  - Cardiopulmonary failure [Fatal]
  - Bronchopulmonary dysplasia [None]
  - Necrotising enterocolitis neonatal [Fatal]
  - Anaemia [None]

NARRATIVE: CASE EVENT DATE: 20141227
